FAERS Safety Report 6147158-4 (Version None)
Quarter: 2009Q2

REPORT INFORMATION
  Report Type: 
  Country: None (occurrence: None)
  Receive Date: 20090407
  Receipt Date: 20080505
  Transmission Date: 20091009
  Serious: No
  Sender: FDA-Public Use
  Company Number: US-TYCO HEALTHCARE/MALLINCKRODT-T200800781

PATIENT

DRUGS (3)
  1. METHADOSE [Suspect]
     Indication: DRUG DEPENDENCE
     Dosage: 190 MG, QD
     Route: 048
     Dates: start: 20071101
  2. METHADOSE [Suspect]
     Dates: start: 19990101, end: 20071101
  3. TYLENOL (CAPLET) [Concomitant]
     Indication: PAIN
     Dosage: 1 TO 2 TABLETS, PRN
     Route: 048

REACTIONS (5)
  - ABDOMINAL DISCOMFORT [None]
  - ERUCTATION [None]
  - INCREASED APPETITE [None]
  - REGURGITATION [None]
  - WEIGHT INCREASED [None]
